FAERS Safety Report 7241401-6 (Version None)
Quarter: 2011Q1

REPORT INFORMATION
  Report Type: 
  Country: None (occurrence: None)
  Receive Date: 20110114
  Receipt Date: 20101231
  Transmission Date: 20110831
  Serious: Yes (Other)
  Sender: FDA-Public Use
  Company Number: ACO_21272_2010

PATIENT
  Age: 40 Year
  Sex: Female
  Weight: 77.1 kg

DRUGS (8)
  1. ALEVE [Concomitant]
  2. REBIF [Concomitant]
  3. BACLOFEN [Concomitant]
  4. AMPYRA [Suspect]
     Indication: GAIT DISTURBANCE
     Dosage: 10 MG, QD, ORAL, 10 MG, Q 12 HRS, ORAL
     Route: 048
     Dates: start: 20101001, end: 20101201
  5. AMPYRA [Suspect]
     Indication: GAIT DISTURBANCE
     Dosage: 10 MG, QD, ORAL, 10 MG, Q 12 HRS, ORAL
     Route: 048
     Dates: start: 20101201, end: 20110104
  6. VITAMIN B-12 [Concomitant]
  7. LEXAPRO [Concomitant]
  8. DITROPAN [Concomitant]

REACTIONS (7)
  - PARAESTHESIA [None]
  - CONVULSION [None]
  - IRRITABILITY [None]
  - INAPPROPRIATE SCHEDULE OF DRUG ADMINISTRATION [None]
  - ANGER [None]
  - CONFUSIONAL STATE [None]
  - DRUG INEFFECTIVE [None]
